FAERS Safety Report 9507274 (Version 1)
Quarter: 2013Q3

REPORT INFORMATION
  Report Type: Spontaneous
  Country: RS (occurrence: RS)
  Receive Date: 20130909
  Receipt Date: 20130909
  Transmission Date: 20140515
  Serious: Yes (Hospitalization)
  Sender: FDA-Public Use
  Company Number: RS-ABBOTT-13X-303-1143301-00

PATIENT
  Age: 75 Year
  Sex: Female
  Weight: 67 kg

DRUGS (1)
  1. KLACID MR [Suspect]
     Indication: RESPIRATORY DISORDER
     Route: 048
     Dates: start: 20130724, end: 20130726

REACTIONS (1)
  - Melaena [Recovered/Resolved]
